FAERS Safety Report 8963589 (Version 1)
Quarter: 2012Q4

REPORT INFORMATION
  Report Type: 
  Country: US (occurrence: US)
  Receive Date: 20121213
  Receipt Date: 20121213
  Transmission Date: 20130627
  Serious: Yes (Other)
  Sender: FDA-Public Use
  Company Number: CHPA2012US024875

PATIENT
  Age: 61 Year
  Sex: Male

DRUGS (1)
  1. NUPERCAINAL HEMORRHOIDAL/ANES OINTMENT [Suspect]
     Indication: ANORECTAL DISCOMFORT
     Dosage: 3 to 4 times per day as needed
     Route: 061

REACTIONS (1)
  - Dementia [Not Recovered/Not Resolved]
